FAERS Safety Report 9543375 (Version 1)
Quarter: 2013Q3

REPORT INFORMATION
  Report Type: Spontaneous
  Country: DE (occurrence: DE)
  Receive Date: 20130923
  Receipt Date: 20130923
  Transmission Date: 20140515
  Serious: Yes (Other)
  Sender: FDA-Public Use
  Company Number: DE-MYLANLABS-2013S1021034

PATIENT
  Age: 35 Year
  Sex: Female
  Weight: 70 kg

DRUGS (4)
  1. LAMOTRIGINE [Suspect]
     Indication: BIPOLAR DISORDER
     Dosage: 300 [MG/D ]
     Route: 048
  2. QUETIAPINE [Suspect]
     Indication: BIPOLAR DISORDER
     Route: 048
  3. LITHIUM [Suspect]
     Indication: BIPOLAR DISORDER
     Route: 048
  4. AUGMENTAN [Concomitant]
     Indication: BACTERIAL INFECTION
     Route: 042
     Dates: start: 20080224, end: 20080225

REACTIONS (3)
  - Exposure during pregnancy [Unknown]
  - Gestational diabetes [Unknown]
  - Hypertension [Unknown]
